FAERS Safety Report 21688564 (Version 7)
Quarter: 2024Q1

REPORT INFORMATION
  Report Type: Spontaneous
  Country: US (occurrence: US)
  Receive Date: 20221206
  Receipt Date: 20240301
  Transmission Date: 20240410
  Serious: Yes (Hospitalization)
  Sender: FDA-Public Use
  Company Number: US-PFIZER INC-202201350184

PATIENT
  Age: 78 Year
  Sex: Male

DRUGS (1)
  1. CELONTIN [Suspect]
     Active Substance: METHSUXIMIDE
     Dosage: 1 CAPSULE TWICE A DAY 90 DAYS
     Route: 048

REACTIONS (2)
  - COVID-19 [Unknown]
  - Arthritis [Unknown]
